FAERS Safety Report 25496538 (Version 1)
Quarter: 2025Q2

REPORT INFORMATION
  Report Type: Spontaneous
  Country: AT (occurrence: AT)
  Receive Date: 20250630
  Receipt Date: 20250630
  Transmission Date: 20250717
  Serious: Yes (Other)
  Sender: JOHNSON AND JOHNSON
  Company Number: AT-JNJFOC-20250637508

PATIENT
  Age: 79 Year
  Sex: Female
  Weight: 52 kg

DRUGS (3)
  1. XARELTO [Suspect]
     Active Substance: RIVAROXABAN
     Indication: Product used for unknown indication
     Route: 048
  2. GARLIC [Concomitant]
     Active Substance: GARLIC
     Indication: Product used for unknown indication
  3. GINGER [Concomitant]
     Active Substance: GINGER
     Indication: Product used for unknown indication

REACTIONS (3)
  - Epilepsy [Unknown]
  - Brain neoplasm [Unknown]
  - Feeling abnormal [Unknown]
